FAERS Safety Report 24583740 (Version 1)
Quarter: 2024Q4

REPORT INFORMATION
  Report Type: Report from Study
  Country: IN (occurrence: IN)
  Receive Date: 20241106
  Receipt Date: 20241106
  Transmission Date: 20250114
  Serious: Yes (Other)
  Sender: CIPLA
  Company Number: IN-CIPLA LTD.-2024IN12374

PATIENT

DRUGS (5)
  1. METOPROLOL SUCCINATE [Suspect]
     Active Substance: METOPROLOL SUCCINATE
     Indication: Product used for unknown indication
     Dosage: DOSE USED 1 (UNITS UNSPECIFIED), FREQUENCY 1 (UNITS UNSPECIFIED)
     Route: 048
  2. ASPIRIN [Concomitant]
     Active Substance: ASPIRIN
     Indication: Product used for unknown indication
     Dosage: UNK, STRENGTH 75 (UNITS UNSPECIFIED)
     Route: 065
     Dates: start: 202110
  3. ATORVASTATIN CALCIUM [Concomitant]
     Active Substance: ATORVASTATIN CALCIUM
     Indication: Product used for unknown indication
     Dosage: UNK, STRENGTH 20 (UNITS UNSPECIFIED)
     Route: 065
     Dates: start: 202110
  4. MET XL [Concomitant]
     Indication: Product used for unknown indication
     Dosage: UNK, STRENGTH 25 (UNITS UNSPECIFIED)
     Route: 065
     Dates: start: 202110
  5. PANTOPRAZOLE SODIUM [Concomitant]
     Active Substance: PANTOPRAZOLE SODIUM
     Indication: Product used for unknown indication
     Dosage: UNK, STRENGTH 40 (UNITS UNSPECIFIED)
     Route: 065
     Dates: start: 202110

REACTIONS (1)
  - Myocardial infarction [Recovered/Resolved]

NARRATIVE: CASE EVENT DATE: 20211001
